FAERS Safety Report 6361360-8 (Version None)
Quarter: 2009Q3

REPORT INFORMATION
  Report Type: 
  Country: None (occurrence: None)
  Receive Date: 20090918
  Receipt Date: 20090915
  Transmission Date: 20100115
  Serious: Yes (Other)
  Sender: FDA-Public Use
  Company Number: B0593366A

PATIENT
  Sex: Female

DRUGS (1)
  1. AUGMENTIN '125' [Suspect]
     Indication: DRUG USE FOR UNKNOWN INDICATION
     Dosage: 1UNIT SINGLE DOSE
     Route: 048
     Dates: start: 20081101, end: 20081101

REACTIONS (4)
  - ANGIOEDEMA [None]
  - FACE OEDEMA [None]
  - PAINFUL RESPIRATION [None]
  - PRURITUS [None]
